FAERS Safety Report 6882282-X (Version None)
Quarter: 2010Q3

REPORT INFORMATION
  Report Type: 
  Country: None (occurrence: None)
  Receive Date: 20100728
  Receipt Date: 20100728
  Transmission Date: 20110219
  Serious: Yes (Hospitalization)
  Sender: FDA-Public Use
  Company Number: None

PATIENT
  Age: 66 Year
  Sex: Male
  Weight: 131 kg

DRUGS (1)
  1. FUROSEMIDE [Suspect]
     Indication: CARDIAC FAILURE CONGESTIVE
     Dosage: 80 MG EVERY DAY PO
     Route: 048
     Dates: start: 20100607, end: 20100614

REACTIONS (3)
  - DEHYDRATION [None]
  - DIZZINESS [None]
  - RENAL INJURY [None]
